FAERS Safety Report 9988739 (Version 1)
Quarter: 2014Q1

REPORT INFORMATION
  Report Type: Report from Study
  Country: CA (occurrence: CA)
  Receive Date: 20140310
  Receipt Date: 20140310
  Transmission Date: 20141002
  Serious: Yes (Death, Hospitalization)
  Sender: FDA-Public Use
  Company Number: CA-JNJFOC-20140303288

PATIENT
  Age: 38 Year
  Sex: Female

DRUGS (3)
  1. TYLENOL [Suspect]
     Route: 065
  2. TYLENOL [Suspect]
     Indication: PRODUCT USED FOR UNKNOWN INDICATION
     Dosage: 6 PER DAY OR 5 TO 10 PER DAY
     Route: 065
     Dates: start: 19980801, end: 19980814
  3. ETHANOL [Concomitant]
     Indication: PRODUCT USED FOR UNKNOWN INDICATION
     Route: 065

REACTIONS (3)
  - Drug abuse [Fatal]
  - Hepatic failure [Fatal]
  - Renal failure [Fatal]
